FAERS Safety Report 12931998 (Version 1)
Quarter: 2016Q4

REPORT INFORMATION
  Report Type: Spontaneous
  Country: DE (occurrence: DE)
  Receive Date: 20161111
  Receipt Date: 20161111
  Transmission Date: 20170207
  Serious: Yes (Hospitalization, Other)
  Sender: FDA-Public Use
  Company Number: DE-AMGEN-DEUSP2016158496

PATIENT
  Age: 47 Year
  Sex: Female

DRUGS (7)
  1. PERTUZUMAB [Suspect]
     Active Substance: PERTUZUMAB
     Dosage: 420 MG, Q3WK (MAINTENANCE DOSE)
     Route: 042
     Dates: start: 20151221
  2. CYCLOPHOSPHAMIDE. [Suspect]
     Active Substance: CYCLOPHOSPHAMIDE
     Indication: BREAST CANCER
     Dosage: 2700 MG, Q2WK (FOR 3 CYCLES AS PER PROTOCOL)
     Route: 042
     Dates: start: 20160119
  3. NEULASTA [Suspect]
     Active Substance: PEGFILGRASTIM
     Indication: BREAST CANCER
     Dosage: 6 MG, UNK
     Route: 058
     Dates: start: 20151020, end: 20160205
  4. TRASTUZUMAB [Suspect]
     Active Substance: TRASTUZUMAB
     Dosage: 390 MG, Q3WK (MAINTENANCE DOSE)
     Route: 042
     Dates: start: 20151221
  5. PERTUZUMAB [Suspect]
     Active Substance: PERTUZUMAB
     Indication: BREAST CANCER
     Dosage: 840 MG, UNK
     Route: 042
     Dates: start: 20151130, end: 20151130
  6. CIPROFLOXACIN. [Concomitant]
     Active Substance: CIPROFLOXACIN
     Indication: BREAST CANCER
     Dosage: 500 MG, UNK
     Route: 048
     Dates: start: 20160123
  7. TRASTUZUMAB [Suspect]
     Active Substance: TRASTUZUMAB
     Indication: BREAST CANCER
     Dosage: 8 MG/KG, AT ONCE (LOADING DOSE)
     Route: 042
     Dates: start: 20151130

REACTIONS (1)
  - Pneumonia [Recovered/Resolved]

NARRATIVE: CASE EVENT DATE: 20160212
